FAERS Safety Report 6383117-4 (Version None)
Quarter: 2009Q3

REPORT INFORMATION
  Report Type: 
  Country: None (occurrence: None)
  Receive Date: 20090930
  Receipt Date: 20090928
  Transmission Date: 20100115
  Serious: Yes (Hospitalization)
  Sender: FDA-Public Use
  Company Number: US-MERCK-0909USA04630

PATIENT
  Age: 51 Year
  Sex: Female

DRUGS (5)
  1. MAXALT-MLT [Suspect]
     Indication: MIGRAINE
     Route: 048
     Dates: start: 20040101
  2. COUMADIN [Concomitant]
     Route: 065
  3. ZOLOFT [Concomitant]
     Route: 065
  4. XANAX [Concomitant]
     Route: 065
  5. AMITRIPTYLINE HYDROCHLORIDE [Concomitant]
     Route: 065

REACTIONS (3)
  - ARTHROPATHY [None]
  - INSOMNIA [None]
  - PRURITUS [None]
